FAERS Safety Report 18712159 (Version 2)
Quarter: 2021Q1

REPORT INFORMATION
  Report Type: Spontaneous
  Country: IN (occurrence: US)
  Receive Date: 20210107
  Receipt Date: 20210122
  Transmission Date: 20210419
  Serious: Yes (Death, Life-Threatening, Hospitalization, Other)
  Sender: FDA-Public Use
  Company Number: US-ELI_LILLY_AND_COMPANY-US202101001187

PATIENT
  Age: 45 Year
  Sex: Female

DRUGS (1)
  1. GEMCITABINE HYDROCHLORIDE. [Suspect]
     Active Substance: GEMCITABINE HYDROCHLORIDE
     Indication: CERVIX CARCINOMA RECURRENT
     Dosage: UNK UNK, UNKNOWN
     Route: 065

REACTIONS (5)
  - Acute kidney injury [Fatal]
  - Proteinuria [Fatal]
  - Renal tubular necrosis [Fatal]
  - Thrombotic microangiopathy [Fatal]
  - Haematuria [Fatal]
